FAERS Safety Report 6908489-0 (Version None)
Quarter: 2010Q3

REPORT INFORMATION
  Report Type: 
  Country: None (occurrence: None)
  Receive Date: 20100803
  Receipt Date: 20100714
  Transmission Date: 20110219
  Serious: Yes (Death, Life-Threatening, Hospitalization, Disabling, Other)
  Sender: FDA-Public Use
  Company Number: 2010P1000338

PATIENT
  Age: 79 Year
  Sex: Male

DRUGS (2)
  1. PHENYTOIN SODIUM [Suspect]
     Dates: start: 20090821
  2. CON MEDS [Concomitant]

REACTIONS (15)
  - ACTIVITIES OF DAILY LIVING IMPAIRED [None]
  - ALOPECIA [None]
  - ANHEDONIA [None]
  - ANXIETY [None]
  - DEFORMITY [None]
  - MENTAL DISORDER [None]
  - MULTI-ORGAN DISORDER [None]
  - MULTIPLE INJURIES [None]
  - ONYCHOMADESIS [None]
  - PAIN [None]
  - SCAR [None]
  - STEVENS-JOHNSON SYNDROME [None]
  - THERMAL BURN [None]
  - TOXIC EPIDERMAL NECROLYSIS [None]
  - VISUAL ACUITY REDUCED [None]
